FAERS Safety Report 9694694 (Version 1)
Quarter: 2013Q4

REPORT INFORMATION
  Report Type: Spontaneous
  Country: US (occurrence: US)
  Receive Date: 20131119
  Receipt Date: 20131119
  Transmission Date: 20140711
  Serious: No
  Sender: FDA-Public Use
  Company Number: US-009507513-1311USA005298

PATIENT
  Sex: Male

DRUGS (2)
  1. SAPHRIS [Suspect]
     Dosage: 10 MG, HS; 10 MG 2 BLISTERS OF 10 FLAVORED TABLETS
     Route: 060
  2. SAPHRIS [Suspect]
     Dosage: 5 MG, HS
     Route: 060

REACTIONS (2)
  - Sedation [Not Recovered/Not Resolved]
  - Adverse event [Not Recovered/Not Resolved]
